FAERS Safety Report 8581555-2 (Version None)
Quarter: 2012Q3

REPORT INFORMATION
  Report Type: 
  Country: None (occurrence: None)
  Receive Date: 20120809
  Receipt Date: 20120802
  Transmission Date: 20120928
  Serious: Yes (Other)
  Sender: FDA-Public Use
  Company Number: JP-PFIZER INC-2012187885

PATIENT
  Age: 55 Year
  Sex: Male

DRUGS (2)
  1. SUTENT [Suspect]
     Dosage: 25 MG, 1X/DAY (CYCLE 4WEEKS/2WEEKS)
  2. SUTENT [Suspect]
     Dosage: UNK (CYCLE 2WEEKS/2WEEKS)

REACTIONS (3)
  - BONE MARROW FAILURE [None]
  - NEUROLOGICAL SYMPTOM [None]
  - BLOOD CREATINE PHOSPHOKINASE INCREASED [None]
